FAERS Safety Report 5962478-1 (Version None)
Quarter: 2008Q4

REPORT INFORMATION
  Report Type: 
  Country: None (occurrence: None)
  Receive Date: 20081121
  Receipt Date: 20081112
  Transmission Date: 20090506
  Serious: Yes (Death, Hospitalization, Other)
  Sender: FDA-Public Use
  Company Number: US-PFIZER INC-2008064966

PATIENT
  Age: 70 Year
  Sex: Male
  Weight: 81.6 kg

DRUGS (2)
  1. LIPITOR [Suspect]
     Indication: BLOOD CHOLESTEROL INCREASED
     Route: 048
     Dates: end: 20080701
  2. LISINOPRIL [Concomitant]

REACTIONS (8)
  - ABDOMINAL PAIN [None]
  - ARTERIAL RUPTURE [None]
  - HAEMOGLOBIN DECREASED [None]
  - HAEMORRHAGE [None]
  - HOSPITALISATION [None]
  - PANCREATITIS CHRONIC [None]
  - PANCREATITIS NECROTISING [None]
  - SPLENIC RUPTURE [None]
